FAERS Safety Report 8553823-1 (Version None)
Quarter: 2012Q3

REPORT INFORMATION
  Report Type: 
  Country: None (occurrence: None)
  Receive Date: 20120725
  Receipt Date: 20120725
  Transmission Date: 20120928
  Serious: Yes (Hospitalization, Other)
  Sender: FDA-Public Use
  Company Number: None

PATIENT
  Sex: Male

DRUGS (3)
  1. RANITIDINE [Concomitant]
  2. PREDNISONE TAB [Suspect]
     Indication: EYE SWELLING
     Dosage: 20MG 3 TIMES A DAY PO
     Route: 048
  3. PREDNISONE TAB [Suspect]
     Indication: EYE INFLAMMATION
     Dosage: 20MG 3 TIMES A DAY PO
     Route: 048

REACTIONS (11)
  - DISORIENTATION [None]
  - CHEST DISCOMFORT [None]
  - PANIC ATTACK [None]
  - MIGRAINE [None]
  - CHEST PAIN [None]
  - INSOMNIA [None]
  - WITHDRAWAL SYNDROME [None]
  - DEHYDRATION [None]
  - FATIGUE [None]
  - ASTHENIA [None]
  - DIZZINESS [None]
